FAERS Safety Report 5602947-7 (Version None)
Quarter: 2008Q1

REPORT INFORMATION
  Report Type: 
  Country: None (occurrence: None)
  Receive Date: 20080111
  Receipt Date: 20071026
  Transmission Date: 20080703
  Serious: Yes (Other)
  Sender: FDA-Public Use
  Company Number: HQWYE238719JUL04

PATIENT
  Sex: Female

DRUGS (5)
  1. PREMPRO [Suspect]
     Indication: HORMONE REPLACEMENT THERAPY
  2. ESTROGENS (ESTROGENS) [Suspect]
     Indication: HORMONE REPLACEMENT THERAPY
  3. MEDROXYPROGESTGERONE ACETATE (MEDROXYPROGESTERONE ACETATE) [Suspect]
  4. PREMARIN [Suspect]
     Indication: HORMONE REPLACEMENT THERAPY
  5. PROVERA [Suspect]
     Indication: HORMONE REPLACEMENT THERAPY

REACTIONS (1)
  - THROMBOSIS [None]
